FAERS Safety Report 17353030 (Version 1)
Quarter: 2020Q1

REPORT INFORMATION
  Report Type: Spontaneous
  Country: US (occurrence: US)
  Receive Date: 20200131
  Receipt Date: 20200131
  Transmission Date: 20200409
  Serious: No
  Sender: FDA-Public Use
  Company Number: US-STRIDES ARCOLAB LIMITED-2019SP011163

PATIENT
  Age: 27 Year
  Sex: Male

DRUGS (6)
  1. OMALIZUMAB. [Suspect]
     Active Substance: OMALIZUMAB
     Indication: URTICARIA CHOLINERGIC
     Dosage: 300 MILLIGRAM ONCE EVERY 4 WEEKS
     Route: 065
  2. CYPROHEPTADINE. [Suspect]
     Active Substance: CYPROHEPTADINE
     Indication: URTICARIA CHOLINERGIC
     Dosage: UNK; HIGH DOSE
     Route: 065
  3. DOXEPIN [Suspect]
     Active Substance: DOXEPIN
     Indication: URTICARIA CHOLINERGIC
     Dosage: UNK; HIGH DOSE
     Route: 065
  4. OMALIZUMAB. [Suspect]
     Active Substance: OMALIZUMAB
     Dosage: 300 MILLIGRAM; ONCE EVERY 2 WEEKS (HIGH DOSE)
     Route: 065
  5. MONTELUKAST [Suspect]
     Active Substance: MONTELUKAST SODIUM
     Indication: URTICARIA CHOLINERGIC
     Dosage: UNK; HIGH DOSE
     Route: 065
  6. CIMETIDINE [Suspect]
     Active Substance: CIMETIDINE
     Indication: URTICARIA CHOLINERGIC
     Dosage: UNK; HIGH DOSE
     Route: 065

REACTIONS (1)
  - Drug ineffective [Unknown]
